FAERS Safety Report 14707680 (Version 1)
Quarter: 2018Q1

REPORT INFORMATION
  Report Type: Spontaneous
  Country: US (occurrence: US)
  Receive Date: 20180329
  Receipt Date: 20180329
  Transmission Date: 20180509
  Serious: Yes (Other)
  Sender: FDA-Public Use
  Company Number: None

PATIENT
  Age: 76 Year
  Sex: Female
  Weight: 70.76 kg

DRUGS (1)
  1. TRAMADOL , HCL 50MG , GENERIC FOR ULRAM [Suspect]
     Active Substance: TRAMADOL HYDROCHLORIDE
     Indication: PROCEDURAL PAIN
     Dosage: ?          QUANTITY:2 DF DOSAGE FORM;?
     Route: 048
     Dates: start: 20180225

REACTIONS (8)
  - Feeling abnormal [None]
  - Serotonin syndrome [None]
  - Hyperhidrosis [None]
  - Feeling hot [None]
  - Agitation [None]
  - Initial insomnia [None]
  - Feeling cold [None]
  - Diarrhoea [None]

NARRATIVE: CASE EVENT DATE: 20180317
